FAERS Safety Report 6975070-7 (Version None)
Quarter: 2010Q3

REPORT INFORMATION
  Report Type: 
  Country: None (occurrence: None)
  Receive Date: 20100910
  Receipt Date: 20090130
  Transmission Date: 20110219
  Serious: No
  Sender: FDA-Public Use
  Company Number: US-WYE-H08008609

PATIENT
  Sex: Female

DRUGS (2)
  1. PRISTIQ [Suspect]
     Indication: PANIC DISORDER
     Dosage: TITRATED UP TO 100 MG
     Route: 048
     Dates: start: 20080501
  2. PRISTIQ [Suspect]
     Route: 048
     Dates: start: 20080101, end: 20081215

REACTIONS (2)
  - CHEST PAIN [None]
  - HEADACHE [None]
